FAERS Safety Report 12607715 (Version 1)
Quarter: 2016Q3

REPORT INFORMATION
  Report Type: Spontaneous
  Country: US (occurrence: US)
  Receive Date: 20160729
  Receipt Date: 20160729
  Transmission Date: 20161109
  Serious: No
  Sender: FDA-Public Use
  Company Number: US-IGSA-IG003685

PATIENT
  Age: 7 Year
  Sex: Female

DRUGS (6)
  1. IGIV (MANUFACTURER PRODUCT UNKNOWN) [Suspect]
     Active Substance: HUMAN IMMUNOGLOBULIN G
  2. CEFTRIAXONE. [Concomitant]
     Active Substance: CEFTRIAXONE
  3. VANCOMYCIN [Concomitant]
     Active Substance: VANCOMYCIN
  4. ACYCLOVIR /00587301/ [Concomitant]
     Active Substance: ACYCLOVIR
  5. DOXYCYCLINE. [Concomitant]
     Active Substance: DOXYCYCLINE
  6. CLINDAMYCIN [Concomitant]
     Active Substance: CLINDAMYCIN\CLINDAMYCIN PHOSPHATE

REACTIONS (2)
  - Periorbital oedema [Recovered/Resolved]
  - Dyspnoea [Recovered/Resolved]
